FAERS Safety Report 8402104-5 (Version None)
Quarter: 2012Q2

REPORT INFORMATION
  Report Type: 
  Country: None (occurrence: None)
  Receive Date: 20120601
  Receipt Date: 20120530
  Transmission Date: 20120825
  Serious: Yes (Death, Hospitalization)
  Sender: FDA-Public Use
  Company Number: PHHY2012GB046498

PATIENT
  Age: 66 Year
  Sex: Female

DRUGS (1)
  1. METHOTREXATE [Suspect]

REACTIONS (9)
  - LIVER FUNCTION TEST ABNORMAL [None]
  - DYSPNOEA [None]
  - MALAISE [None]
  - DEATH [None]
  - CHEST DISCOMFORT [None]
  - COUGH [None]
  - EMOTIONAL DISTRESS [None]
  - GENERAL PHYSICAL HEALTH DETERIORATION [None]
  - ALOPECIA [None]
